FAERS Safety Report 8956021 (Version 2)
Quarter: 2012Q4

REPORT INFORMATION
  Report Type: 
  Country: JP (occurrence: JP)
  Receive Date: 20121210
  Receipt Date: 20121228
  Transmission Date: 20130627
  Serious: Yes (Hospitalization)
  Sender: FDA-Public Use
  Company Number: JP-BAXTER-2012BAX026307

PATIENT
  Sex: Male
  Weight: 50 kg

DRUGS (1)
  1. DIANEAL-N PD-4 1.5 [Suspect]
     Indication: RENAL FAILURE CHRONIC
     Route: 033

REACTIONS (1)
  - Hypoglycaemia [Recovered/Resolved]
